FAERS Safety Report 12236062 (Version 2)
Quarter: 2016Q2

REPORT INFORMATION
  Report Type: Spontaneous
  Country: US (occurrence: US)
  Receive Date: 20160404
  Receipt Date: 20160418
  Transmission Date: 20160815
  Serious: No
  Sender: FDA-Public Use
  Company Number: US-ELI_LILLY_AND_COMPANY-US201603007624

PATIENT
  Sex: Male

DRUGS (2)
  1. HUMATROPE [Suspect]
     Active Substance: SOMATROPIN
     Indication: BLOOD GROWTH HORMONE
     Dosage: UNK, UNKNOWN
     Route: 065
     Dates: start: 201602
  2. HUMATROPE [Suspect]
     Active Substance: SOMATROPIN
     Dosage: 3 MG, 6/W
     Route: 065

REACTIONS (1)
  - Underdose [Not Recovered/Not Resolved]

NARRATIVE: CASE EVENT DATE: 20160313
